FAERS Safety Report 12655078 (Version 1)
Quarter: 2016Q3

REPORT INFORMATION
  Report Type: Spontaneous
  Country: CH (occurrence: CH)
  Receive Date: 20160816
  Receipt Date: 20160816
  Transmission Date: 20161109
  Serious: Yes (Other)
  Sender: FDA-Public Use
  Company Number: CH-PFIZER INC-2016273984

PATIENT
  Age: 75 Year
  Sex: Female
  Weight: 65 kg

DRUGS (3)
  1. LYRICA [Suspect]
     Active Substance: PREGABALIN
     Indication: NEURALGIA
     Dosage: 450 MG, DAILY (150 MG-0-300 MG)
     Route: 048
     Dates: start: 201302, end: 201605
  2. PALEXIA [Concomitant]
     Active Substance: TAPENTADOL HYDROCHLORIDE
     Indication: PAIN
     Dosage: 150 MG, 2X/DAY
     Route: 048
     Dates: start: 20140808, end: 20160503
  3. PREDNISON [Concomitant]
     Active Substance: PREDNISONE
     Indication: MYALGIA
     Dosage: 5-20 MG, 1X/DAY (FOR YEARS)
     Route: 048

REACTIONS (7)
  - Lumbar spinal stenosis [Unknown]
  - Fatigue [Unknown]
  - Pseudarthrosis [Unknown]
  - Spinal fracture [Unknown]
  - Disease progression [Unknown]
  - Depression [Unknown]
  - Diarrhoea [Unknown]
